FAERS Safety Report 25198872 (Version 2)
Quarter: 2025Q2

REPORT INFORMATION
  Report Type: Spontaneous
  Country: PT (occurrence: PT)
  Receive Date: 20250415
  Receipt Date: 20250425
  Transmission Date: 20250716
  Serious: Yes (Other)
  Sender: NOVARTIS
  Company Number: PT-ORESUND-25OPAJY0268P

PATIENT
  Age: 54 Year
  Sex: Male

DRUGS (4)
  1. CYCLOSPORINE [Suspect]
     Active Substance: CYCLOSPORINE
     Indication: Birdshot chorioretinopathy
     Route: 065
  2. DEXAMETHASONE [Concomitant]
     Active Substance: DEXAMETHASONE
     Indication: Birdshot chorioretinopathy
     Route: 031
  3. PREDNISOLONE [Concomitant]
     Active Substance: PREDNISOLONE
     Indication: Birdshot chorioretinopathy
     Route: 048
  4. FLUOCINOLONE ACETONIDE [Concomitant]
     Active Substance: FLUOCINOLONE ACETONIDE
     Indication: Birdshot chorioretinopathy
     Route: 031

REACTIONS (5)
  - Macular oedema [Recovering/Resolving]
  - Skin reaction [Recovering/Resolving]
  - Lymphocytosis [Recovering/Resolving]
  - Visual acuity reduced [Recovering/Resolving]
  - Off label use [Unknown]
